FAERS Safety Report 6985324-6 (Version None)
Quarter: 2010Q3

REPORT INFORMATION
  Report Type: 
  Country: None (occurrence: None)
  Receive Date: 20100915
  Receipt Date: 20100909
  Transmission Date: 20110219
  Serious: No
  Sender: FDA-Public Use
  Company Number: US-PFIZER INC-2010114210

PATIENT
  Sex: Female
  Weight: 54.431 kg

DRUGS (3)
  1. LYRICA [Suspect]
     Indication: NEURALGIA
     Dosage: 75 MG, 2X/DAY
     Route: 048
     Dates: start: 20100801, end: 20100801
  2. ZYRTEC [Concomitant]
     Dosage: UNK
  3. SKELAXIN [Concomitant]
     Dosage: UNK

REACTIONS (1)
  - INSOMNIA [None]
